FAERS Safety Report 4524115-2 (Version None)
Quarter: 2004Q4

REPORT INFORMATION
  Report Type: 
  Country: None (occurrence: None)
  Receive Date: 20041209
  Receipt Date: 20041130
  Transmission Date: 20050328
  Serious: Yes (Other)
  Sender: FDA-Public Use
  Company Number: 2004100852

PATIENT
  Age: 68 Year
  Sex: Male

DRUGS (4)
  1. AMLODIPINE [Suspect]
     Indication: PAIN
     Dosage: 5 MG
  2. SIMVASTATIN [Suspect]
     Indication: PAIN
     Dosage: 20 MG
  3. ASPIRIN [Concomitant]
  4. HEPARIN [Concomitant]

REACTIONS (13)
  - BLOOD BILIRUBIN INCREASED [None]
  - BLOOD LACTATE DEHYDROGENASE INCREASED [None]
  - CATHETER SEPSIS [None]
  - CONTUSION [None]
  - ELECTROCARDIOGRAM ST SEGMENT DEPRESSION [None]
  - HEADACHE [None]
  - HYPERSENSITIVITY [None]
  - MOUTH HAEMORRHAGE [None]
  - NAUSEA [None]
  - OEDEMA [None]
  - STAPHYLOCOCCAL SEPSIS [None]
  - THROMBOTIC THROMBOCYTOPENIC PURPURA [None]
  - TROPONIN T INCREASED [None]
